FAERS Safety Report 21667002 (Version 1)
Quarter: 2022Q4

REPORT INFORMATION
  Report Type: Report from Study
  Country: ES (occurrence: ES)
  Receive Date: 20221201
  Receipt Date: 20221201
  Transmission Date: 20230113
  Serious: Yes (Life-Threatening, Hospitalization)
  Sender: FDA-Public Use
  Company Number: None

PATIENT
  Age: 31 Year
  Sex: Female

DRUGS (6)
  1. SERTRALINE [Interacting]
     Active Substance: SERTRALINE HYDROCHLORIDE
     Dates: start: 20220809, end: 20220809
  2. PREGABALIN [Interacting]
     Active Substance: PREGABALIN
     Dosage: 28 TABLETS TOTAL IN A SINGLE DOSE
     Dates: start: 20220809, end: 20220809
  3. LORMETAZEPAM [Interacting]
     Active Substance: LORMETAZEPAM
     Dates: start: 20220809, end: 20220809
  4. OLANZAPINE [Interacting]
     Active Substance: OLANZAPINE
     Dates: start: 20220809, end: 20220809
  5. LORMETAZEPAM [Concomitant]
     Active Substance: LORMETAZEPAM
     Indication: Insomnia
     Dates: start: 202203, end: 20220808
  6. PREGABALIN [Concomitant]
     Active Substance: PREGABALIN
     Indication: Depression
     Dates: start: 20220324, end: 20220808

REACTIONS (4)
  - Suicide attempt [Unknown]
  - Depressed level of consciousness [Recovered/Resolved]
  - Intentional overdose [Unknown]
  - Drug interaction [Unknown]

NARRATIVE: CASE EVENT DATE: 20220809
